FAERS Safety Report 24835593 (Version 2)
Quarter: 2025Q1

REPORT INFORMATION
  Report Type: Report from Study
  Country: KR (occurrence: KR)
  Receive Date: 20250113
  Receipt Date: 20250121
  Transmission Date: 20250409
  Serious: Yes (Hospitalization)
  Sender: BEIGENE
  Company Number: KR-BEIGENE-BGN-2025-000414

PATIENT
  Age: 90 Year
  Weight: 53.7 kg

DRUGS (3)
  1. TISLELIZUMAB [Suspect]
     Active Substance: TISLELIZUMAB
     Indication: Oesophageal carcinoma
  2. FLUOROURACIL [Suspect]
     Active Substance: FLUOROURACIL
     Indication: Oesophageal carcinoma
  3. CISPLATIN [Suspect]
     Active Substance: CISPLATIN
     Indication: Oesophageal carcinoma

REACTIONS (2)
  - Asthenia [Recovered/Resolved]
  - Varicella zoster virus infection [Recovered/Resolved]
